FAERS Safety Report 10504710 (Version 1)
Quarter: 2014Q3

REPORT INFORMATION
  Report Type: Spontaneous
  Country: US (occurrence: None)
  Receive Date: 20140915
  Receipt Date: 20140915
  Transmission Date: 20150326
  Serious: Yes (Other)
  Sender: FDA-Public Use
  Company Number: 2011SGN00302

PATIENT
  Age: 46 Year
  Sex: Male

DRUGS (1)
  1. ADCETRIS [Suspect]
     Active Substance: BRENTUXIMAB VEDOTIN
     Indication: HODGKIN^S DISEASE
     Route: 042
     Dates: start: 20111020, end: 20111110

REACTIONS (6)
  - Chest discomfort [None]
  - Oxygen saturation decreased [None]
  - Rash [None]
  - Flushing [None]
  - Throat irritation [None]
  - Swelling face [None]

NARRATIVE: CASE EVENT DATE: 20111110
